FAERS Safety Report 9699880 (Version 2)
Quarter: 2013Q4

REPORT INFORMATION
  Report Type: Report from Study
  Country: US (occurrence: US)
  Receive Date: 20131121
  Receipt Date: 20131121
  Transmission Date: 20140711
  Serious: Yes (Hospitalization)
  Sender: FDA-Public Use
  Company Number: US-MERCK-1302USA010163

PATIENT
  Age: 58 Year
  Sex: Male
  Weight: 99 kg

DRUGS (5)
  1. BOCEPREVIR [Suspect]
     Dosage: 800 MG, TID
     Route: 048
     Dates: start: 20121128
  2. RIBAVIRIN [Suspect]
     Indication: HEPATITIS C
     Dosage: 1200 MG, QD
     Route: 048
     Dates: start: 20121030, end: 20130128
  3. RIBAVIRIN [Suspect]
     Dosage: 600 MG, QD
     Route: 048
     Dates: start: 20130129
  4. PEGINTERFERON ALFA-2B [Suspect]
     Dosage: 180 MICROGRAM, QW
     Route: 058
     Dates: start: 20121030, end: 20130218
  5. PEGINTERFERON ALFA-2B [Suspect]
     Dosage: 135 MICROGRAM, QW
     Route: 058
     Dates: start: 20130219

REACTIONS (1)
  - Haemoglobin decreased [Recovered/Resolved]
